FAERS Safety Report 14952077 (Version 2)
Quarter: 2018Q2

REPORT INFORMATION
  Report Type: Spontaneous
  Country: NL (occurrence: NL)
  Receive Date: 20180530
  Receipt Date: 20180626
  Transmission Date: 20180711
  Serious: Yes (Other)
  Sender: FDA-Public Use
  Company Number: NL-SYNTHON BV-NL01PV18_46974

PATIENT
  Sex: Male

DRUGS (1)
  1. TAMSULOSINE TEVA [Suspect]
     Active Substance: TAMSULOSIN HYDROCHLORIDE
     Indication: DYSURIA
     Dosage: 0.4 MG, UNK

REACTIONS (2)
  - Dysuria [Unknown]
  - Drug ineffective [Unknown]
